FAERS Safety Report 19496630 (Version 1)
Quarter: 2021Q3

REPORT INFORMATION
  Report Type: Spontaneous
  Country: US (occurrence: US)
  Receive Date: 20210703
  Receipt Date: 20210703
  Transmission Date: 20211014
  Serious: No
  Sender: FDA-Public Use
  Company Number: None

PATIENT
  Age: 50 Year
  Sex: Female
  Weight: 120.2 kg

DRUGS (2)
  1. OMNIPAQUE [Concomitant]
     Active Substance: IOHEXOL
     Dates: start: 20210623, end: 20210623
  2. OMNIPAQUE [Suspect]
     Active Substance: IOHEXOL
     Route: 040
     Dates: start: 20210623, end: 20210623

REACTIONS (2)
  - Throat tightness [None]
  - Dysphagia [None]

NARRATIVE: CASE EVENT DATE: 20210623
